FAERS Safety Report 13373103 (Version 1)
Quarter: 2017Q1

REPORT INFORMATION
  Report Type: Spontaneous
  Country: US (occurrence: US)
  Receive Date: 20170325
  Receipt Date: 20170325
  Transmission Date: 20170429
  Serious: No
  Sender: FDA-Public Use
  Company Number: None

PATIENT
  Age: 28 Year
  Sex: Female
  Weight: 67.5 kg

DRUGS (7)
  1. MULTIVITAMIN [Concomitant]
     Active Substance: VITAMINS
  2. COQ10 [Concomitant]
     Active Substance: UBIDECARENONE
  3. MAGNESIUM [Concomitant]
     Active Substance: MAGNESIUM
  4. JOLESSA [Concomitant]
     Active Substance: ETHINYL ESTRADIOL\LEVONORGESTREL
  5. METHYLPHENIDATE ER 27 MG TAB [Suspect]
     Active Substance: METHYLPHENIDATE
     Indication: ATTENTION DEFICIT/HYPERACTIVITY DISORDER
     Dosage: ?          QUANTITY:1 CAPSULE(S);?
     Route: 048
     Dates: start: 20170323
  6. RED YEAST RICE [Concomitant]
     Active Substance: DIETARY SUPPLEMENT
  7. FISH OIL [Concomitant]
     Active Substance: FISH OIL

REACTIONS (3)
  - Drug effect decreased [None]
  - Drug effect incomplete [None]
  - Product substitution issue [None]

NARRATIVE: CASE EVENT DATE: 20170323
